FAERS Safety Report 4327274-X (Version None)
Quarter: 2004Q1

REPORT INFORMATION
  Report Type: 
  Country: None (occurrence: None)
  Receive Date: 20040319
  Receipt Date: 20031217
  Transmission Date: 20041129
  Serious: No
  Sender: FDA-Public Use
  Company Number: US-JNJFOC-20031201522

PATIENT
  Age: 39 Year
  Sex: Female
  Weight: 54.4316 kg

DRUGS (2)
  1. ORTHO EVRA [Suspect]
     Indication: CONTRACEPTION
     Dosage: 1 DOSE(S), 3 IN 4 WEEK, TRANSDERMAL
     Route: 062
     Dates: start: 20031129
  2. VITAMIN B SUPPLEMENT (VITAMIN B) [Concomitant]

REACTIONS (4)
  - METRORRHAGIA [None]
  - UNEXPECTED THERAPEUTIC DRUG EFFECT [None]
  - VAGINAL MYCOSIS [None]
  - VAGINITIS GARDNERELLA [None]
